FAERS Safety Report 8198887-2 (Version None)
Quarter: 2012Q1

REPORT INFORMATION
  Report Type: 
  Country: None (occurrence: None)
  Receive Date: 20120309
  Receipt Date: 20120222
  Transmission Date: 20120608
  Serious: No
  Sender: FDA-Public Use
  Company Number: US-AMGEN-USASP2012006495

PATIENT
  Age: 79 Year
  Sex: Female
  Weight: 80.726 kg

DRUGS (7)
  1. PROLIA [Suspect]
     Indication: OSTEOPOROSIS POSTMENOPAUSAL
     Dosage: 60 MG, Q6MO
     Dates: start: 20110517
  2. VITAMIN TAB [Concomitant]
  3. VITAMIN D [Concomitant]
     Dosage: 50000 IU, QWK
     Dates: start: 20070101
  4. TAPAZOLE [Concomitant]
     Dosage: 25 MG, QD
     Dates: start: 20070101
  5. LISINOPRIL [Concomitant]
     Dosage: 40 MG, QD
     Dates: start: 20100101
  6. VYTORIN [Concomitant]
     Dosage: UNK, QD
     Dates: start: 20070101
  7. ACIPHEX [Concomitant]
     Dosage: 20 MG, QD
     Dates: start: 20070101

REACTIONS (3)
  - ARTHRALGIA [None]
  - PAIN IN EXTREMITY [None]
  - OEDEMA PERIPHERAL [None]
